FAERS Safety Report 14665945 (Version 1)
Quarter: 2018Q1

REPORT INFORMATION
  Report Type: Report from Study
  Country: JP (occurrence: JP)
  Receive Date: 20180321
  Receipt Date: 20180321
  Transmission Date: 20180509
  Serious: Yes (Death, Disabling, Other)
  Sender: FDA-Public Use
  Company Number: JP-BRISTOL-MYERS SQUIBB COMPANY-BMS-2018-026305

PATIENT
  Age: 70 Year
  Sex: Male

DRUGS (1)
  1. NIVOLUMAB [Suspect]
     Active Substance: NIVOLUMAB
     Indication: METASTATIC RENAL CELL CARCINOMA
     Dosage: 3 MG/KG, UNK
     Route: 041
     Dates: start: 20170106, end: 20170217

REACTIONS (3)
  - Hemiparesis [Recovered/Resolved with Sequelae]
  - Malignant neoplasm progression [Fatal]
  - Gait disturbance [Recovered/Resolved with Sequelae]

NARRATIVE: CASE EVENT DATE: 20170225
